FAERS Safety Report 9263884 (Version 1)
Quarter: 2013Q2

REPORT INFORMATION
  Report Type: Spontaneous
  Country: DE (occurrence: DE)
  Receive Date: 20130430
  Receipt Date: 20130430
  Transmission Date: 20140414
  Serious: Yes (Other)
  Sender: FDA-Public Use
  Company Number: DE-GENZYME-THYR-1000903

PATIENT
  Age: 45 Year
  Sex: Female

DRUGS (6)
  1. THYROGEN [Suspect]
     Indication: PRODUCT USED FOR UNKNOWN INDICATION
     Dosage: 2 DF; UNK
     Route: 030
     Dates: start: 20130323, end: 20130324
  2. A.T. 10 [Suspect]
     Indication: PRODUCT USED FOR UNKNOWN INDICATION
     Dosage: 20 GTT, QD
     Route: 065
     Dates: end: 20130327
  3. CALCIUM [Suspect]
     Indication: PRODUCT USED FOR UNKNOWN INDICATION
     Dosage: 1000 MG, BID
     Route: 065
     Dates: end: 20130327
  4. CALCIUM [Suspect]
     Dosage: UNK
     Route: 065
  5. L-THYROXIN [Concomitant]
     Indication: HYPOTHYROIDISM
     Dosage: 175 MG, QD
     Route: 065
  6. DOXEPIN [Concomitant]
     Indication: DEPRESSION
     Dosage: 50 MG, QD
     Route: 065

REACTIONS (2)
  - Hypercalcaemia [Recovered/Resolved]
  - Paraesthesia [Unknown]
